FAERS Safety Report 8132591-1 (Version None)
Quarter: 2012Q1

REPORT INFORMATION
  Report Type: 
  Country: None (occurrence: None)
  Receive Date: 20120213
  Receipt Date: 20120202
  Transmission Date: 20120608
  Serious: Yes (Hospitalization)
  Sender: FDA-Public Use
  Company Number: GB-ASTRAZENECA-2012SE04830

PATIENT
  Age: 23145 Day
  Sex: Male

DRUGS (11)
  1. ASPIRIN [Suspect]
     Indication: ACUTE MYOCARDIAL INFARCTION
     Route: 048
     Dates: start: 20120103, end: 20120103
  2. NITROGLYCERIN [Concomitant]
     Route: 060
     Dates: start: 20120103
  3. PLAVIX [Suspect]
     Indication: ACUTE MYOCARDIAL INFARCTION
     Dosage: 180 MG LOADING DOSE, 90 MG TWICE DAILY DURING 30 DAYS
     Route: 048
     Dates: start: 20120103, end: 20120119
  4. ATENOLOL [Concomitant]
     Route: 048
  5. ASPIRIN [Suspect]
     Route: 048
     Dates: start: 20120105
  6. RAMIPRIL [Concomitant]
     Route: 048
     Dates: start: 20120105
  7. ACETAMINOPHEN [Concomitant]
     Route: 048
     Dates: start: 20120104
  8. ATORVASTATIN [Concomitant]
     Route: 048
     Dates: start: 20120104
  9. NICOTINE [Concomitant]
     Dates: start: 20120105
  10. NICOTINE [Concomitant]
     Route: 055
     Dates: start: 20120105
  11. TIROFIBAN [Concomitant]
     Indication: ANTICOAGULANT THERAPY
     Dosage: 55 MLS ONCE SINGLE ADMINISTRATION
     Route: 042
     Dates: start: 20120103, end: 20120103

REACTIONS (1)
  - GASTROINTESTINAL TELANGIECTASIA [None]
